FAERS Safety Report 16809638 (Version 2)
Quarter: 2019Q4

REPORT INFORMATION
  Report Type: Spontaneous
  Country: JP (occurrence: JP)
  Receive Date: 20190916
  Receipt Date: 20191104
  Transmission Date: 20200122
  Serious: Yes (Other)
  Sender: FDA-Public Use
  Company Number: JP-CELGENEUS-JPN-20190903157

PATIENT
  Age: 61 Year
  Sex: Female

DRUGS (3)
  1. MOGAMULIZUMAB [Concomitant]
     Active Substance: MOGAMULIZUMAB
     Indication: ADULT T-CELL LYMPHOMA/LEUKAEMIA
     Dosage: UNKNOWN
     Route: 065
  2. REVLIMID [Suspect]
     Active Substance: LENALIDOMIDE
     Route: 048
     Dates: start: 20190205, end: 20190228
  3. REVLIMID [Suspect]
     Active Substance: LENALIDOMIDE
     Indication: ADULT T-CELL LYMPHOMA/LEUKAEMIA
     Route: 048
     Dates: start: 20181203, end: 20190108

REACTIONS (3)
  - Adult T-cell lymphoma/leukaemia [Unknown]
  - Adult T-cell lymphoma/leukaemia [Unknown]
  - Acute graft versus host disease in skin [Recovering/Resolving]

NARRATIVE: CASE EVENT DATE: 20181204
